FAERS Safety Report 18575480 (Version 1)
Quarter: 2020Q4

REPORT INFORMATION
  Report Type: Report from Study
  Country: EG (occurrence: EG)
  Receive Date: 20201203
  Receipt Date: 20201203
  Transmission Date: 20210114
  Serious: Yes (Hospitalization)
  Sender: FDA-Public Use
  Company Number: NVSC2020EG306765

PATIENT
  Sex: Female

DRUGS (1)
  1. GLIVEC [Suspect]
     Active Substance: IMATINIB MESYLATE
     Indication: CHRONIC MYELOID LEUKAEMIA
     Dosage: 400 MG, QD (STARTED 6 YEARS AGO AND END ONE YEAR AGO)
     Route: 065

REACTIONS (3)
  - Maternal exposure during pregnancy [Unknown]
  - Polymerase chain reaction [Unknown]
  - Normal newborn [Unknown]
